FAERS Safety Report 10418439 (Version 2)
Quarter: 2015Q1

REPORT INFORMATION
  Report Type: Spontaneous
  Country: US (occurrence: None)
  Receive Date: 20140827
  Receipt Date: 20150130
  Transmission Date: 20150720
  Serious: Yes (Death)
  Sender: FDA-Public Use
  Company Number: 2014TASUS000472

PATIENT
  Age: 49 Year
  Sex: Male
  Weight: 135.6 kg

DRUGS (22)
  1. HETLIOZ [Suspect]
     Active Substance: TASIMELTEON
     Indication: CIRCADIAN RHYTHM SLEEP DISORDER
     Route: 048
     Dates: start: 20140618
  2. ATIVAN [Concomitant]
     Active Substance: LORAZEPAM
  3. ERYTHROMYCIN. [Concomitant]
     Active Substance: ERYTHROMYCIN
  4. ROBAXIN [Concomitant]
     Active Substance: METHOCARBAMOL
  5. METHADONE [Concomitant]
     Active Substance: METHADONE HYDROCHLORIDE
  6. AMBIEN [Concomitant]
     Active Substance: ZOLPIDEM TARTRATE
  7. ARMOUR THYROID [Concomitant]
     Active Substance: THYROID, PORCINE\THYROID, UNSPECIFIED
  8. TERAZOSIN (TERAZOSIN HYDROCHLORIDE) [Concomitant]
  9. FLUCONAZOLE. [Concomitant]
     Active Substance: FLUCONAZOLE
  10. VOLTAREN [Concomitant]
     Active Substance: DICLOFENAC SODIUM
  11. MAXALT [Concomitant]
     Active Substance: RIZATRIPTAN BENZOATE
  12. KLONOPIN [Concomitant]
     Active Substance: CLONAZEPAM
  13. SOMA [Concomitant]
     Active Substance: CARISOPRODOL
  14. VOLTAREN [Concomitant]
     Active Substance: DICLOFENAC SODIUM
  15. HYDROCHLOROTHIAZIDE. [Concomitant]
     Active Substance: HYDROCHLOROTHIAZIDE
  16. ADVAIR HFA [Concomitant]
     Active Substance: FLUTICASONE PROPIONATE\SALMETEROL XINAFOATE
  17. NORCO [Concomitant]
     Active Substance: ACETAMINOPHEN\HYDROCODONE BITARTRATE
  18. CIALIS [Concomitant]
     Active Substance: TADALAFIL
  19. VIT D (ERGOCALCIFEROL) [Concomitant]
     Active Substance: ERGOCALCIFEROL
  20. SINGULAIR [Concomitant]
     Active Substance: MONTELUKAST SODIUM
  21. PREDNISONE. [Concomitant]
     Active Substance: PREDNISONE
  22. ALBUTEROL (SALBUTAMOL SULFATE) [Concomitant]

REACTIONS (4)
  - Death [None]
  - Cyanosis [None]
  - Disease progression [None]
  - Unresponsive to stimuli [None]

NARRATIVE: CASE EVENT DATE: 20140805
